FAERS Safety Report 19759027 (Version 1)
Quarter: 2021Q3

REPORT INFORMATION
  Report Type: Report from Study
  Country: US (occurrence: US)
  Receive Date: 20210827
  Receipt Date: 20210827
  Transmission Date: 20211014
  Serious: Yes (Hospitalization, Other)
  Sender: FDA-Public Use
  Company Number: US-SHIRE-US202014204

PATIENT
  Sex: Female

DRUGS (1)
  1. CUVITRU [Suspect]
     Active Substance: HUMAN IMMUNOGLOBULIN G
     Indication: HYPOGAMMAGLOBULINAEMIA
     Dosage: UNK
     Route: 065

REACTIONS (11)
  - Gastrointestinal disorder [Unknown]
  - Hepatic lesion [Unknown]
  - Chronic kidney disease [Unknown]
  - Rheumatoid arthritis [Unknown]
  - Foot fracture [Unknown]
  - Upper respiratory fungal infection [Unknown]
  - Herpes zoster [Unknown]
  - Bronchiectasis [Unknown]
  - Asthma [Unknown]
  - Atrial fibrillation [Recovered/Resolved]
  - Arthralgia [Unknown]
